FAERS Safety Report 9805655 (Version 1)
Quarter: 2014Q1

REPORT INFORMATION
  Report Type: Spontaneous
  Country: US (occurrence: US)
  Receive Date: 20140109
  Receipt Date: 20140109
  Transmission Date: 20141002
  Serious: No
  Sender: FDA-Public Use
  Company Number: US-TARO-2013P1005879

PATIENT
  Age: 77 Year
  Sex: Female
  Weight: 63.5 kg

DRUGS (15)
  1. CLOBETASOL PROPIONATE (CLOBETASOL PROPIONATE) LOTION, 0.05% [Suspect]
     Indication: ALOPECIA
     Route: 061
     Dates: start: 201212
  2. CLOBETASOL PROPIONATE (CLOBETASOL PROPIONATE) LOTION, 0.05% [Suspect]
     Route: 061
     Dates: start: 201212
  3. CLOBETASOL PROPIONATE (CLOBETASOL PROPIONATE) LOTION, 0.05% [Suspect]
     Indication: ALOPECIA
     Route: 061
     Dates: end: 2013
  4. CLOBETASOL PROPIONATE (CLOBETASOL PROPIONATE) LOTION, 0.05% [Suspect]
     Route: 061
     Dates: end: 2013
  5. CICLOPIROX [Suspect]
     Route: 061
     Dates: start: 201212, end: 20130416
  6. CICLOPIROX [Suspect]
     Indication: ALOPECIA
     Route: 061
     Dates: start: 201212, end: 20130416
  7. GARNIER HAIR CONDITIONER [Concomitant]
     Route: 061
  8. ZZZQUIL [Concomitant]
     Route: 048
  9. VITAMIN B COMPLEX [Concomitant]
     Route: 048
  10. VITAMIN D [Concomitant]
     Route: 048
  11. BIOTIN [Concomitant]
     Route: 048
  12. CALCIUM AND VITAMIN D3 [Concomitant]
     Route: 048
  13. MONOMETASONE 0.1% CREAM [Concomitant]
     Route: 061
  14. DESOXIMETASONE 0.25% CREAM [Concomitant]
     Route: 061
  15. VESICARE [Concomitant]

REACTIONS (3)
  - Pruritus [Not Recovered/Not Resolved]
  - Alopecia [Not Recovered/Not Resolved]
  - Off label use [Unknown]
